FAERS Safety Report 6451842-2 (Version None)
Quarter: 2009Q4

REPORT INFORMATION
  Report Type: 
  Country: None (occurrence: None)
  Receive Date: 20091123
  Receipt Date: 20091110
  Transmission Date: 20100525
  Serious: Yes (Other)
  Sender: FDA-Public Use
  Company Number: FR-ELI_LILLY_AND_COMPANY-FR200911003378

PATIENT
  Age: 40 Year
  Sex: Female

DRUGS (4)
  1. CYMBALTA [Suspect]
     Indication: DEPRESSION
     Dosage: 60 MG, DAILY (1/D)
     Route: 048
     Dates: start: 20080501
  2. NOCERTONE [Concomitant]
     Indication: MIGRAINE
     Dosage: UNK, UNKNOWN
     Route: 048
  3. PRONTALGINE [Concomitant]
     Indication: MIGRAINE
     Dosage: UNK, UNKNOWN
     Route: 048
  4. EPITOMAX [Concomitant]
     Indication: MIGRAINE
     Dosage: UNK, UNKNOWN
     Route: 048

REACTIONS (4)
  - BLOOD PRESSURE SYSTOLIC INCREASED [None]
  - HEPATIC STEATOSIS [None]
  - TYPE 2 DIABETES MELLITUS [None]
  - WEIGHT DECREASED [None]
